FAERS Safety Report 21432534 (Version 1)
Quarter: 2022Q4

REPORT INFORMATION
  Report Type: Spontaneous
  Country: DE (occurrence: DE)
  Receive Date: 20221010
  Receipt Date: 20221010
  Transmission Date: 20230113
  Serious: Yes (Hospitalization, Other)
  Sender: FDA-Public Use
  Company Number: DE-ADRED-08504-01

PATIENT

DRUGS (19)
  1. PREGABALIN [Suspect]
     Active Substance: PREGABALIN
     Indication: Product used for unknown indication
     Dosage: 50 MG, 1-1-0-0
     Route: 048
  2. PREGABALIN [Suspect]
     Active Substance: PREGABALIN
     Dosage: 25 MG, 0-0-0-1
     Route: 048
  3. RISPERIDONE [Suspect]
     Active Substance: RISPERIDONE
     Indication: Product used for unknown indication
     Dosage: 2 MG, 0-0.5-0.5-0
     Route: 048
  4. MELPERONE [Suspect]
     Active Substance: MELPERONE
     Indication: Product used for unknown indication
     Dosage: 25 MG, 0-0-1-0.5
     Route: 048
  5. SERTRALINE HYDROCHLORIDE [Suspect]
     Active Substance: SERTRALINE HYDROCHLORIDE
     Indication: Product used for unknown indication
     Dosage: 50 MG, 1-0-0-0
     Route: 048
  6. PERAZINE [Suspect]
     Active Substance: PERAZINE
     Indication: Product used for unknown indication
     Dosage: 25 MG, 1-1-0-0
     Route: 048
  7. Acc 600 [Concomitant]
     Indication: Product used for unknown indication
     Dosage: 600 MG, 1-0-0-0
     Route: 048
  8. SODIUM CHLORIDE [Concomitant]
     Active Substance: SODIUM CHLORIDE
     Indication: Product used for unknown indication
     Dosage: 500 ML, BEI BEDARF
     Route: 058
  9. Dulcolax 10mg suppositories [Concomitant]
     Indication: Product used for unknown indication
     Dosage: BEI BEDARF
     Route: 054
  10. INSULIN ASPART [Concomitant]
     Active Substance: INSULIN ASPART
     Indication: Product used for unknown indication
     Dosage: NACH SCHEMA
     Route: 058
  11. AmoxiClav 500/125-1A Pharma [Concomitant]
     Indication: Product used for unknown indication
     Dosage: 500|125 MG, 1-1-1-0
     Route: 048
  12. METAMIZOL [Concomitant]
     Active Substance: METAMIZOLE SODIUM
     Indication: Product used for unknown indication
     Dosage: 500 MG, 1-0-1-0
     Route: 048
  13. CARVEDILOL [Concomitant]
     Active Substance: CARVEDILOL
     Indication: Product used for unknown indication
     Dosage: 12.5 MG, 1-0-0-0
     Route: 048
  14. ASPIRIN [Concomitant]
     Active Substance: ASPIRIN
     Indication: Product used for unknown indication
     Dosage: 100 MG, 0-1-0-0
     Route: 048
  15. PIPAMPERONE HYDROCHLORIDE [Concomitant]
     Active Substance: PIPAMPERONE HYDROCHLORIDE
     Indication: Product used for unknown indication
     Dosage: 40 MG, BEI BEDARF
     Route: 048
  16. LANTUS [Concomitant]
     Active Substance: INSULIN GLARGINE
     Indication: Product used for unknown indication
     Dosage: 0-0-0-8
     Route: 058
  17. SITAGLIPTIN [Concomitant]
     Active Substance: SITAGLIPTIN
     Indication: Product used for unknown indication
     Dosage: 50 MG, 1-0-0-0
     Route: 048
  18. RAMIPRIL [Concomitant]
     Active Substance: RAMIPRIL
     Indication: Product used for unknown indication
     Dosage: 5 MG, 0-0-0.5-0
     Route: 048
  19. LACTULOSE [Concomitant]
     Active Substance: LACTULOSE
     Indication: Product used for unknown indication
     Dosage: 5-0-5-0
     Route: 048

REACTIONS (17)
  - Urosepsis [Unknown]
  - Atrial fibrillation [Unknown]
  - Pneumonia [Unknown]
  - Hypovolaemia [Unknown]
  - Dehydration [Unknown]
  - Thrombocytopenia [Unknown]
  - General physical health deterioration [Unknown]
  - Infection [Unknown]
  - Tachycardia [Unknown]
  - Labelled drug-drug interaction medication error [Unknown]
  - Cough [Unknown]
  - Hypernatraemia [Unknown]
  - Hypotension [Unknown]
  - Acute kidney injury [Unknown]
  - Pyrexia [Unknown]
  - Disturbance in attention [Unknown]
  - Blood creatine phosphokinase increased [Unknown]
